FAERS Safety Report 23453918 (Version 1)
Quarter: 2024Q1

REPORT INFORMATION
  Report Type: Spontaneous
  Country: US (occurrence: US)
  Receive Date: 20240129
  Receipt Date: 20240129
  Transmission Date: 20240410
  Serious: No
  Sender: FDA-Public Use
  Company Number: US-009507513-2401USA015568

PATIENT
  Sex: Female

DRUGS (2)
  1. PRIMAXIN IV [Suspect]
     Active Substance: CILASTATIN SODIUM\IMIPENEM
  2. LINEZOLID [Suspect]
     Active Substance: LINEZOLID

REACTIONS (2)
  - Adverse event [Unknown]
  - Antimicrobial susceptibility test resistant [Unknown]
